FAERS Safety Report 21151412 (Version 2)
Quarter: 2022Q3

REPORT INFORMATION
  Report Type: Spontaneous
  Country: US (occurrence: None)
  Receive Date: 20220730
  Receipt Date: 20220917
  Transmission Date: 20221026
  Serious: No
  Sender: FDA-Public Use
  Company Number: 2022A268318

PATIENT
  Age: 27257 Day
  Sex: Male

DRUGS (1)
  1. BYDUREON BCISE [Suspect]
     Active Substance: EXENATIDE
     Dosage: 2.0MG UNKNOWN
     Route: 058
     Dates: start: 20220513

REACTIONS (3)
  - Injection site haemorrhage [Unknown]
  - Incorrect dose administered by device [Unknown]
  - Needle issue [Unknown]

NARRATIVE: CASE EVENT DATE: 20220726
